FAERS Safety Report 6602532-4 (Version None)
Quarter: 2010Q1

REPORT INFORMATION
  Report Type: 
  Country: None (occurrence: None)
  Receive Date: 20100217
  Receipt Date: 20100126
  Transmission Date: 20100710
  Serious: Yes (Life-Threatening, Hospitalization)
  Sender: FDA-Public Use
  Company Number: 1-21203929

PATIENT
  Age: 40 Year
  Sex: Female
  Weight: 73.0291 kg

DRUGS (4)
  1. FENTANYL [Suspect]
     Indication: HIV INFECTION
     Dosage: 100 MCG/HR Q 2 DAYS, TRANSDERMAL
     Route: 062
     Dates: start: 20070101, end: 20090918
  2. FENTANYL [Suspect]
     Indication: PAIN IN EXTREMITY
     Dosage: 100 MCG/HR Q 2 DAYS, TRANSDERMAL
     Route: 062
     Dates: start: 20070101, end: 20090918
  3. FENTANYL-50 [Suspect]
     Indication: HIV INFECTION
     Dosage: 50 MCG/HR Q 2 DAYS, TRANSDERMAL
     Route: 062
     Dates: start: 20070101, end: 20090918
  4. FENTANYL-50 [Suspect]
     Indication: PAIN IN EXTREMITY
     Dosage: 50 MCG/HR Q 2 DAYS, TRANSDERMAL
     Route: 062
     Dates: start: 20070101, end: 20090918

REACTIONS (17)
  - ALPHA HAEMOLYTIC STREPTOCOCCAL INFECTION [None]
  - ATELECTASIS [None]
  - CONJUNCTIVITIS [None]
  - DEVICE RELATED INFECTION [None]
  - DRUG ABUSE [None]
  - FALL [None]
  - HYPONATRAEMIA [None]
  - HYPOTENSION [None]
  - LOSS OF CONSCIOUSNESS [None]
  - OVERDOSE [None]
  - PERICARDIAL EFFUSION [None]
  - PERITONITIS [None]
  - PNEUMONIA [None]
  - RESPIRATORY ARREST [None]
  - SEPSIS [None]
  - SOMNOLENCE [None]
  - TREATMENT NONCOMPLIANCE [None]
